FAERS Safety Report 9900000 (Version 3)
Quarter: 2014Q3

REPORT INFORMATION
  Report Type: Spontaneous
  Country: US (occurrence: US)
  Receive Date: 20140214
  Receipt Date: 20140814
  Transmission Date: 20150326
  Serious: No
  Sender: FDA-Public Use
  Company Number: US-VIVUS-2013V1000877

PATIENT
  Age: 57 Year
  Sex: Female
  Weight: 83.99 kg

DRUGS (6)
  1. QSYMIA [Suspect]
     Active Substance: PHENTERMINE HYDROCHLORIDE\TOPIRAMATE
     Indication: WEIGHT DECREASED
     Route: 048
     Dates: end: 2014
  2. NOVOLOG 10 [Concomitant]
     Indication: DIABETES MELLITUS
     Route: 058
     Dates: start: 2005
  3. DECONGESTANT [Suspect]
     Active Substance: UNSPECIFIED INGREDIENT
     Indication: HYPERSENSITIVITY
  4. QSYMIA [Suspect]
     Active Substance: PHENTERMINE HYDROCHLORIDE\TOPIRAMATE
     Indication: WEIGHT DECREASED
     Route: 048
     Dates: start: 201311
  5. NOVOLIN 70/30 INSULIN [Concomitant]
     Indication: TYPE 1 DIABETES MELLITUS
     Dosage: SLIDING SCALE
     Route: 058
     Dates: start: 2005
  6. QSYMIA [Suspect]
     Active Substance: PHENTERMINE HYDROCHLORIDE\TOPIRAMATE
     Indication: WEIGHT DECREASED
     Route: 048
     Dates: start: 20140203

REACTIONS (8)
  - Panic disorder [Not Recovered/Not Resolved]
  - Sinus congestion [Recovering/Resolving]
  - Disturbance in attention [Recovered/Resolved]
  - Tinnitus [Recovering/Resolving]
  - Memory impairment [Recovered/Resolved]
  - Blood glucose decreased [Not Recovered/Not Resolved]
  - Intranasal hypoaesthesia [Recovering/Resolving]
  - Hunger [Recovered/Resolved]

NARRATIVE: CASE EVENT DATE: 201311
